FAERS Safety Report 9925069 (Version 11)
Quarter: 2016Q3

REPORT INFORMATION
  Report Type: Spontaneous
  Country: CA (occurrence: CA)
  Receive Date: 20140226
  Receipt Date: 20160706
  Transmission Date: 20161109
  Serious: Yes (Disabling, Other)
  Sender: FDA-Public Use
  Company Number: CA-AMGEN-CANSP2014012049

PATIENT
  Age: 59 Year
  Sex: Female
  Weight: 56 kg

DRUGS (1)
  1. PROLIA [Suspect]
     Active Substance: DENOSUMAB
     Indication: OSTEOPOROSIS POSTMENOPAUSAL
     Dosage: 60 MG, Q6MO
     Route: 058
     Dates: start: 20140121

REACTIONS (58)
  - Rheumatoid arthritis [Unknown]
  - Gastrointestinal pain [Recovered/Resolved]
  - Hypersensitivity [Unknown]
  - Constipation [Recovered/Resolved]
  - Influenza [Unknown]
  - Toothache [Unknown]
  - Pyrexia [Recovered/Resolved]
  - Rash macular [Recovering/Resolving]
  - Neck pain [Unknown]
  - Abdominal discomfort [Recovering/Resolving]
  - Back pain [Not Recovered/Not Resolved]
  - Musculoskeletal pain [Not Recovered/Not Resolved]
  - Impaired work ability [Unknown]
  - Headache [Unknown]
  - Cough [Unknown]
  - Dyspepsia [Recovered/Resolved]
  - Jaw disorder [Unknown]
  - Malaise [Unknown]
  - Nasopharyngitis [Unknown]
  - Weight decreased [Unknown]
  - Oral discomfort [Recovered/Resolved]
  - Gastrointestinal motility disorder [Unknown]
  - Pain in jaw [Not Recovered/Not Resolved]
  - Musculoskeletal discomfort [Not Recovered/Not Resolved]
  - Ear pain [Unknown]
  - Ear discomfort [Unknown]
  - Decreased appetite [Unknown]
  - Eating disorder [Unknown]
  - Diarrhoea [Recovered/Resolved]
  - Activities of daily living impaired [Unknown]
  - Abdominal distension [Recovered/Resolved]
  - Flatulence [Recovered/Resolved]
  - Gingival erythema [Recovered/Resolved]
  - Food intolerance [Unknown]
  - Faeces discoloured [Recovered/Resolved]
  - Fatigue [Unknown]
  - Burn oesophageal [Unknown]
  - Abdominal pain upper [Recovered/Resolved]
  - Erythema [Unknown]
  - Hyperchlorhydria [Recovered/Resolved]
  - Stomatitis [Unknown]
  - Pain [Not Recovered/Not Resolved]
  - Bone pain [Unknown]
  - Fibromyalgia [Unknown]
  - Skin burning sensation [Unknown]
  - Discomfort [Unknown]
  - Local swelling [Not Recovered/Not Resolved]
  - Acne [Unknown]
  - Oesophageal pain [Recovered/Resolved]
  - Discomfort [Recovered/Resolved]
  - Sleep disorder due to general medical condition, insomnia type [Unknown]
  - Chest pain [Recovered/Resolved]
  - Hypoaesthesia [Unknown]
  - Muscle spasms [Unknown]
  - Myalgia [Recovering/Resolving]
  - Rash erythematous [Recovering/Resolving]
  - Gastrooesophageal reflux disease [Recovered/Resolved]
  - Pain in extremity [Not Recovered/Not Resolved]

NARRATIVE: CASE EVENT DATE: 20140121
